FAERS Safety Report 8976763 (Version 1)
Quarter: 2012Q4

REPORT INFORMATION
  Report Type: 
  Country: FR (occurrence: FR)
  Receive Date: 20121220
  Receipt Date: 20121220
  Transmission Date: 20130627
  Serious: Yes (Hospitalization, Other)
  Sender: FDA-Public Use
  Company Number: FR-ASTRAZENECA-2012SE93250

PATIENT
  Age: 25432 Day
  Sex: Male

DRUGS (20)
  1. BRILIQUE [Suspect]
     Route: 048
     Dates: start: 20121005, end: 20121022
  2. TRIATEC [Concomitant]
     Route: 048
     Dates: end: 20121005
  3. TRIATEC [Concomitant]
     Route: 048
     Dates: start: 20121005
  4. SECTRAL [Concomitant]
     Route: 048
     Dates: end: 20121005
  5. ALDACTONE [Concomitant]
     Route: 048
     Dates: start: 201204
  6. DEROXAT [Concomitant]
     Route: 048
     Dates: start: 201207
  7. DEROXAT [Concomitant]
     Route: 048
     Dates: end: 20121012
  8. IMOVANE [Concomitant]
     Dates: end: 20121012
  9. LEXOMIL [Concomitant]
     Dates: start: 201207, end: 20121012
  10. ELISOR [Concomitant]
     Dates: end: 20121005
  11. MODOPAR [Concomitant]
     Dates: start: 201204, end: 20121004
  12. KARDEGIC [Concomitant]
  13. NOVOMIX [Concomitant]
  14. DOLIPRANE [Concomitant]
  15. TERCIAN [Concomitant]
     Dates: start: 20121010
  16. ZYPREXA [Concomitant]
     Dates: start: 20121012
  17. HALDOL [Concomitant]
     Dates: start: 20121019
  18. CARDENSIEL [Concomitant]
     Route: 048
     Dates: start: 20121005
  19. TAHOR [Concomitant]
     Dates: start: 20121005
  20. TRIVASTAL [Concomitant]
     Indication: TREMOR
     Dates: start: 20121010, end: 201210

REACTIONS (4)
  - Abnormal behaviour [Unknown]
  - Myocardial infarction [Unknown]
  - Aggression [Unknown]
  - Drug ineffective [Recovered/Resolved]
